FAERS Safety Report 5159258-6 (Version None)
Quarter: 2006Q4

REPORT INFORMATION
  Report Type: 
  Country: None (occurrence: None)
  Receive Date: 20061120
  Receipt Date: 20061109
  Transmission Date: 20070319
  Serious: Yes (Hospitalization)
  Sender: FDA-Public Use
  Company Number: 2006SP006092

PATIENT
  Age: 71 Year
  Sex: Male
  Weight: 55 kg

DRUGS (1)
  1. TEMODAL [Suspect]
     Indication: GLIOBLASTOMA MULTIFORME
     Dosage: 150 MCG/M2; QD; PO
     Route: 048
     Dates: start: 20061004, end: 20061008

REACTIONS (3)
  - ENTEROCOLITIS BACTERIAL [None]
  - ESCHERICHIA INFECTION [None]
  - IMMUNOSUPPRESSION [None]
